FAERS Safety Report 20340726 (Version 1)
Quarter: 2022Q1

REPORT INFORMATION
  Report Type: Spontaneous
  Country: CO (occurrence: CO)
  Receive Date: 20220117
  Receipt Date: 20220117
  Transmission Date: 20220423
  Serious: Yes (Other)
  Sender: FDA-Public Use
  Company Number: CO-PFIZER INC-202200027114

PATIENT
  Age: 88 Year
  Sex: Male

DRUGS (1)
  1. DOXAZOSIN MESYLATE [Suspect]
     Active Substance: DOXAZOSIN MESYLATE
     Indication: Hypertension
     Dosage: 4 MG
     Route: 048
     Dates: start: 20211021

REACTIONS (2)
  - Bacterial infection [Unknown]
  - Pain [Unknown]

NARRATIVE: CASE EVENT DATE: 20210101
